FAERS Safety Report 6299694-8 (Version None)
Quarter: 2009Q3

REPORT INFORMATION
  Report Type: 
  Country: None (occurrence: None)
  Receive Date: 20090806
  Receipt Date: 20090803
  Transmission Date: 20100115
  Serious: Yes (Hospitalization)
  Sender: FDA-Public Use
  Company Number: JP-SP-2009-03207

PATIENT
  Age: 76 Year
  Sex: Female

DRUGS (1)
  1. IMMUCYST [Suspect]
     Indication: URETERIC CANCER
     Route: 065

REACTIONS (4)
  - DISSEMINATED TUBERCULOSIS [None]
  - HEPATIC FUNCTION ABNORMAL [None]
  - HEPATOSPLENOMEGALY [None]
  - OFF LABEL USE [None]
